FAERS Safety Report 5959504-2 (Version None)
Quarter: 2008Q4

REPORT INFORMATION
  Report Type: 
  Country: None (occurrence: None)
  Receive Date: 20081117
  Receipt Date: 20081104
  Transmission Date: 20090506
  Serious: Yes (Other)
  Sender: FDA-Public Use
  Company Number: VISP-NO-0811S-0539

PATIENT
  Age: 79 Year
  Sex: Female

DRUGS (1)
  1. VISIPAQUE [Suspect]
     Dosage: NR, SINGLE DOSE, I.V.
     Route: 042
     Dates: start: 20081015, end: 20081019

REACTIONS (3)
  - ABDOMINAL PAIN [None]
  - ELECTROCARDIOGRAM ST SEGMENT DEPRESSION [None]
  - ELECTROCARDIOGRAM T WAVE INVERSION [None]
